FAERS Safety Report 6728372-3 (Version None)
Quarter: 2010Q2

REPORT INFORMATION
  Report Type: 
  Country: None (occurrence: None)
  Receive Date: 20100512
  Receipt Date: 20100501
  Transmission Date: 20101027
  Serious: Yes (Hospitalization)
  Sender: FDA-Public Use
  Company Number: 7003439

PATIENT
  Sex: Female

DRUGS (4)
  1. REBIF [Suspect]
     Dosage: 44 MCG, 3 IN 1 WK, SUBCUTANEOUS
     Route: 058
     Dates: start: 20100308
  2. ROCEPHIN [Suspect]
     Indication: INFECTION
     Dates: start: 20100101
  3. VANCOMYCIN [Suspect]
     Indication: INFECTION
     Dates: start: 20100101
  4. INSULIN (INSULIN) [Concomitant]

REACTIONS (2)
  - ARTHRITIS BACTERIAL [None]
  - DRUG HYPERSENSITIVITY [None]
